FAERS Safety Report 7006406-9 (Version None)
Quarter: 2010Q3

REPORT INFORMATION
  Report Type: 
  Country: None (occurrence: None)
  Receive Date: 20100909
  Receipt Date: 20100901
  Transmission Date: 20110219
  Serious: Yes (Disabling)
  Sender: FDA-Public Use
  Company Number: 2010SP047225

PATIENT
  Age: 11 Year
  Sex: Female
  Weight: 50 kg

DRUGS (4)
  1. DESLORATADINE [Suspect]
     Indication: RHINITIS ALLERGIC
     Dosage: ; QD; PO
     Route: 048
     Dates: start: 20100805, end: 20100806
  2. SINGULAIR [Concomitant]
  3. RHINOCORT [Concomitant]
  4. SYMBICORT [Concomitant]

REACTIONS (1)
  - HALLUCINATION [None]
